FAERS Safety Report 7573457-5 (Version None)
Quarter: 2011Q2

REPORT INFORMATION
  Report Type: 
  Country: None (occurrence: None)
  Receive Date: 20110627
  Receipt Date: 20110609
  Transmission Date: 20111010
  Serious: No
  Sender: FDA-Public Use
  Company Number: US-B.I. PHARMACEUTICALS,INC./RIDGEFIELD-2011-BP-13118BP

PATIENT
  Age: 80 Year
  Sex: Female

DRUGS (1)
  1. PRADAXA [Suspect]
     Indication: ATRIAL FIBRILLATION
     Dosage: 150 MG
     Route: 048
     Dates: start: 20110507

REACTIONS (7)
  - DIZZINESS [None]
  - DECREASED APPETITE [None]
  - DEPRESSED MOOD [None]
  - INSOMNIA [None]
  - HEADACHE [None]
  - ABNORMAL DREAMS [None]
  - FATIGUE [None]
